FAERS Safety Report 4422309-8 (Version None)
Quarter: 2004Q3

REPORT INFORMATION
  Report Type: 
  Country: None (occurrence: None)
  Receive Date: 20040713
  Receipt Date: 20040315
  Transmission Date: 20050211
  Serious: No
  Sender: FDA-Public Use
  Company Number: PHEH2003US10568

PATIENT
  Age: 55 Year
  Sex: Female

DRUGS (2)
  1. ELIDEL [Suspect]
     Indication: ROSACEA
     Dosage: QD, TOPICAL
     Route: 061
     Dates: start: 20030801
  2. NIZORAL [Concomitant]

REACTIONS (3)
  - ARTHRALGIA [None]
  - MUSCULOSKELETAL PAIN [None]
  - PAIN [None]
